FAERS Safety Report 4313974-4 (Version None)
Quarter: 2004Q1

REPORT INFORMATION
  Report Type: 
  Country: None (occurrence: None)
  Receive Date: 20040305
  Receipt Date: 20040224
  Transmission Date: 20041129
  Serious: No
  Sender: FDA-Public Use
  Company Number: 04P-167-0251664-00

PATIENT
  Sex: Female

DRUGS (1)
  1. BIAXIN [Suspect]
     Dates: start: 20040201

REACTIONS (1)
  - RENAL FAILURE [None]
